FAERS Safety Report 22356714 (Version 3)
Quarter: 2024Q4

REPORT INFORMATION
  Report Type: Spontaneous
  Country: US (occurrence: US)
  Receive Date: 20230523
  Receipt Date: 20241015
  Transmission Date: 20250115
  Serious: Yes (Death, Other)
  Sender: PFIZER
  Company Number: US-PFIZER INC-202300196506

PATIENT
  Age: 83 Year
  Sex: Male

DRUGS (3)
  1. VYNDAMAX [Suspect]
     Active Substance: TAFAMIDIS
     Indication: Amyloidosis
     Dosage: UNK, 1X/DAY (BELIEVES IT IS 60MG)
  2. VYNDAMAX [Suspect]
     Active Substance: TAFAMIDIS
     Dosage: 61MG ONCE A DAY BURNT ORANGE COLOR
  3. TYLENOL [Concomitant]
     Active Substance: ACETAMINOPHEN
     Dosage: UNK

REACTIONS (3)
  - Squamous cell carcinoma [Fatal]
  - Gingival cancer [Unknown]
  - Lip and/or oral cavity cancer [Unknown]

NARRATIVE: CASE EVENT DATE: 20241001
